FAERS Safety Report 16177396 (Version 2)
Quarter: 2019Q2

REPORT INFORMATION
  Report Type: Spontaneous
  Country: PL (occurrence: PL)
  Receive Date: 20190410
  Receipt Date: 20190606
  Transmission Date: 20190711
  Serious: Yes (Other)
  Sender: FDA-Public Use
  Company Number: PL-ROCHE-2294911

PATIENT
  Age: 59 Year
  Sex: Female

DRUGS (5)
  1. ZOLEDRONIC ACID. [Concomitant]
     Active Substance: ZOLEDRONIC ACID
     Route: 042
  2. PERJETA [Suspect]
     Active Substance: PERTUZUMAB
     Indication: BREAST CANCER
     Dosage: 13 CYCLES SO FAR
     Route: 065
  3. HERCEPTIN [Suspect]
     Active Substance: TRASTUZUMAB
     Indication: BREAST CANCER
     Dosage: 13 CYCLES SO FAR
     Route: 065
  4. DEXAVEN [Concomitant]
     Active Substance: DEXAMETHASONE
     Route: 042
     Dates: start: 20180713, end: 20180713
  5. DOCETAXEL. [Suspect]
     Active Substance: DOCETAXEL
     Indication: BREAST CANCER
     Dosage: 6 CYCLES
     Route: 042
     Dates: start: 20180713, end: 20181116

REACTIONS (5)
  - Pyrexia [Unknown]
  - Chills [Unknown]
  - Polyneuropathy [Recovering/Resolving]
  - Skin swelling [Unknown]
  - Skin hypertrophy [Unknown]

NARRATIVE: CASE EVENT DATE: 201811
